FAERS Safety Report 17318441 (Version 8)
Quarter: 2021Q2

REPORT INFORMATION
  Report Type: Report from Study
  Country: CA (occurrence: CA)
  Receive Date: 20200124
  Receipt Date: 20210624
  Transmission Date: 20210716
  Serious: Yes (Hospitalization, Other)
  Sender: FDA-Public Use
  Company Number: PHHY2019CA102821

PATIENT
  Age: 41 Year
  Sex: Female

DRUGS (22)
  1. XOLAIR [Suspect]
     Active Substance: OMALIZUMAB
     Dosage: 300 MG, EVERY 4 WEEKS
     Route: 058
     Dates: start: 20200304
  2. CHLORASEPTIC SORE THROAT [Suspect]
     Active Substance: PHENOL
     Indication: PRODUCT USED FOR UNKNOWN INDICATION
     Dosage: UNK
     Route: 065
  3. SINGULAIR [Concomitant]
     Active Substance: MONTELUKAST SODIUM
     Indication: HYPERSENSITIVITY
     Dosage: 10 MG, QD
     Route: 065
     Dates: start: 2012
  4. SALBUTAMOL [Concomitant]
     Active Substance: ALBUTEROL
     Indication: PRODUCT USED FOR UNKNOWN INDICATION
     Dosage: 1 DF, TID
     Route: 055
     Dates: start: 201805
  5. XOLAIR [Suspect]
     Active Substance: OMALIZUMAB
     Dosage: 300 MG, EVERY 4 WEEKS
     Route: 058
     Dates: start: 201910
  6. CYCLOSPORINE. [Suspect]
     Active Substance: CYCLOSPORINE
     Indication: CHRONIC SPONTANEOUS URTICARIA
     Dosage: 50 MG, QD
     Route: 048
     Dates: start: 201201
  7. PREDNISONE. [Concomitant]
     Active Substance: PREDNISONE
     Indication: PRODUCT USED FOR UNKNOWN INDICATION
     Dosage: 50 MG, PRN
     Route: 065
     Dates: start: 2012
  8. REACTINE [Concomitant]
     Indication: PRODUCT USED FOR UNKNOWN INDICATION
     Dosage: 20 MG, BID
     Route: 065
     Dates: start: 2012
  9. XOLAIR [Suspect]
     Active Substance: OMALIZUMAB
     Indication: ASTHMA
     Dosage: 300 MG, EVERY 4 WEEKS
     Route: 058
     Dates: start: 20190826
  10. CETRIZINE [Suspect]
     Active Substance: CETIRIZINE HYDROCHLORIDE
     Indication: PRODUCT USED FOR UNKNOWN INDICATION
     Dosage: UNK
     Route: 065
     Dates: start: 2011
  11. BENADRYL [Concomitant]
     Active Substance: DIPHENHYDRAMINE HYDROCHLORIDE
     Indication: PRODUCT USED FOR UNKNOWN INDICATION
     Dosage: 1 DF, BID
     Route: 048
     Dates: start: 201103
  12. XOLAIR [Suspect]
     Active Substance: OMALIZUMAB
     Indication: CHRONIC SPONTANEOUS URTICARIA
     Dosage: 300 MG, EVERY 4 WEEKS
     Route: 058
     Dates: start: 20190730
  13. XOLAIR [Suspect]
     Active Substance: OMALIZUMAB
     Dosage: 300 MG, EVERY 4 WEEKS
     Route: 058
     Dates: start: 20200402
  14. BENADRYL [Concomitant]
     Active Substance: DIPHENHYDRAMINE HYDROCHLORIDE
     Dosage: 50 MG, BID
     Route: 048
     Dates: start: 2012
  15. PREMARIN [Concomitant]
     Active Substance: ESTROGENS, CONJUGATED
     Indication: PRODUCT USED FOR UNKNOWN INDICATION
     Dosage: 1 DF, QD
     Route: 048
     Dates: start: 1998
  16. SYMBICORT [Concomitant]
     Active Substance: BUDESONIDE\FORMOTEROL FUMARATE DIHYDRATE
     Indication: PRODUCT USED FOR UNKNOWN INDICATION
     Dosage: 1 DF, BID
     Route: 055
     Dates: start: 201805
  17. XOLAIR [Suspect]
     Active Substance: OMALIZUMAB
     Dosage: 300 MG,EVERY 4 WEEKS
     Route: 058
     Dates: start: 20200430
  18. XOLAIR [Suspect]
     Active Substance: OMALIZUMAB
     Dosage: 150 MG, EVERY 4 WEEKS
     Route: 058
  19. PERCOCET [Concomitant]
     Active Substance: ACETAMINOPHEN\OXYCODONE HYDROCHLORIDE
     Indication: PRODUCT USED FOR UNKNOWN INDICATION
     Dosage: 3 DF, QD
     Route: 048
     Dates: start: 2008
  20. BECLOMETHASONE [Concomitant]
     Active Substance: BECLOMETHASONE
     Indication: PRODUCT USED FOR UNKNOWN INDICATION
     Dosage: 1 DF, BID
     Route: 055
     Dates: start: 201805
  21. XOLAIR [Suspect]
     Active Substance: OMALIZUMAB
     Dosage: 300 MG, EVERY 4 WEEKS
     Route: 058
     Dates: start: 20190924
  22. CLARITIN [Concomitant]
     Active Substance: LORATADINE
     Indication: PRODUCT USED FOR UNKNOWN INDICATION
     Dosage: 10 MG, UNK
     Route: 065
     Dates: start: 2012

REACTIONS (49)
  - Angioedema [Unknown]
  - Pruritus [Unknown]
  - Musculoskeletal discomfort [Unknown]
  - Migraine without aura [Unknown]
  - Inflammation [Unknown]
  - Chills [Recovering/Resolving]
  - Arthralgia [Unknown]
  - Drug ineffective [Unknown]
  - Intracranial pressure increased [Unknown]
  - Vomiting [Recovering/Resolving]
  - Asthenia [Unknown]
  - Erythema [Unknown]
  - Temperature intolerance [Unknown]
  - Urticaria pressure [Unknown]
  - Blindness [Unknown]
  - Pain in extremity [Unknown]
  - Injection site scab [Not Recovered/Not Resolved]
  - Condition aggravated [Unknown]
  - Product use in unapproved indication [Unknown]
  - Blood pressure increased [Not Recovered/Not Resolved]
  - Pyrexia [Recovering/Resolving]
  - Eye swelling [Unknown]
  - Hypertension [Unknown]
  - Peripheral swelling [Unknown]
  - Drug hypersensitivity [Unknown]
  - Streptococcal infection [Unknown]
  - Chronic spontaneous urticaria [Unknown]
  - Myalgia [Unknown]
  - Headache [Unknown]
  - Product dose omission issue [Unknown]
  - Incorrect dose administered [Unknown]
  - Urticaria [Not Recovered/Not Resolved]
  - Urticaria thermal [Unknown]
  - Pain [Unknown]
  - Lung disorder [Recovered/Resolved]
  - Oxygen saturation decreased [Unknown]
  - Nausea [Unknown]
  - Symptom recurrence [Unknown]
  - Feeling abnormal [Unknown]
  - Malaise [Unknown]
  - Wrong technique in product usage process [Unknown]
  - Diarrhoea [Recovering/Resolving]
  - Migraine [Unknown]
  - Arthropod bite [Not Recovered/Not Resolved]
  - Bone pain [Unknown]
  - Impaired healing [Not Recovered/Not Resolved]
  - Fatigue [Unknown]
  - Cough [Unknown]
  - Weight increased [Unknown]

NARRATIVE: CASE EVENT DATE: 201201
